FAERS Safety Report 15709553 (Version 1)
Quarter: 2018Q4

REPORT INFORMATION
  Report Type: Spontaneous
  Country: US (occurrence: US)
  Receive Date: 20181211
  Receipt Date: 20181211
  Transmission Date: 20190205
  Serious: No
  Sender: FDA-Public Use
  Company Number: US-SUNOVION-2018SUN004711

PATIENT
  Sex: Male

DRUGS (2)
  1. LATUDA [Suspect]
     Active Substance: LURASIDONE HYDROCHLORIDE
     Dosage: 80 MG, IN THE AM
     Route: 048
  2. LATUDA [Suspect]
     Active Substance: LURASIDONE HYDROCHLORIDE
     Dosage: 60 MG, IN THE EVENING
     Route: 048

REACTIONS (5)
  - Product dose omission [Unknown]
  - Hallucination [Unknown]
  - Psychomotor hyperactivity [Unknown]
  - Off label use [Unknown]
  - Psychotic disorder [Unknown]
